FAERS Safety Report 24612415 (Version 2)
Quarter: 2024Q4

REPORT INFORMATION
  Report Type: Spontaneous
  Country: FR (occurrence: FR)
  Receive Date: 20241113
  Receipt Date: 20241120
  Transmission Date: 20250114
  Serious: Yes (Death, Other)
  Sender: RECORDATI
  Company Number: FR-ORPHANEU-2024008697

PATIENT

DRUGS (1)
  1. SYLVANT [Suspect]
     Active Substance: SILTUXIMAB
     Indication: Product used for unknown indication
     Dosage: 2 DOSES, 3 TIMES
     Dates: start: 20240912

REACTIONS (2)
  - Cardiac disorder [Fatal]
  - Myocarditis [Unknown]

NARRATIVE: CASE EVENT DATE: 20240101
